FAERS Safety Report 7950341-6 (Version None)
Quarter: 2011Q4

REPORT INFORMATION
  Report Type: 
  Country: None (occurrence: None)
  Receive Date: 20111130
  Receipt Date: 20111116
  Transmission Date: 20120403
  Serious: Yes (Hospitalization)
  Sender: FDA-Public Use
  Company Number: US-BAYER-2011-061893

PATIENT
  Age: 33 Year
  Sex: Female

DRUGS (3)
  1. POLYETH/ GLYC [Concomitant]
  2. YAZ [Suspect]
     Dosage: UNK
     Dates: start: 20080401, end: 20080701
  3. APAP W/ CODEINE [Concomitant]

REACTIONS (4)
  - ANXIETY [None]
  - HAEMORRHAGIC STROKE [None]
  - EMOTIONAL DISTRESS [None]
  - PAIN [None]
